FAERS Safety Report 17488349 (Version 1)
Quarter: 2020Q1

REPORT INFORMATION
  Report Type: Spontaneous
  Country: US (occurrence: US)
  Receive Date: 20200302
  Receipt Date: 20200302
  Transmission Date: 20200409
  Serious: Yes (Hospitalization)
  Sender: FDA-Public Use
  Company Number: None

PATIENT
  Age: 60 Year
  Sex: Male

DRUGS (10)
  1. DOXEPIN [Concomitant]
     Active Substance: DOXEPIN
  2. HYDROCO/APAP [Concomitant]
     Active Substance: ACETAMINOPHEN\HYDROCODONE
  3. RANITIDINE. [Concomitant]
     Active Substance: RANITIDINE
  4. WARFARIN [Concomitant]
     Active Substance: WARFARIN
  5. ALPRAZOLAM. [Concomitant]
     Active Substance: ALPRAZOLAM
  6. FOLIC ACID. [Concomitant]
     Active Substance: FOLIC ACID
  7. ESCITALOPRAM [Concomitant]
     Active Substance: ESCITALOPRAM OXALATE
  8. GABAPENTIN. [Concomitant]
     Active Substance: GABAPENTIN
  9. PRALUENT [Suspect]
     Active Substance: ALIROCUMAB
     Indication: HYPERLIPIDAEMIA
     Dosage: ?          OTHER FREQUENCY:EVERY 2 WEEKS;?
     Route: 058
     Dates: start: 20180628
  10. BENAZEPRIL [Concomitant]
     Active Substance: BENAZEPRIL HYDROCHLORIDE

REACTIONS (2)
  - Cerebral haemorrhage [None]
  - Thrombosis [None]

NARRATIVE: CASE EVENT DATE: 20191206
